FAERS Safety Report 5330900-X (Version None)
Quarter: 2007Q1

REPORT INFORMATION
  Report Type: 
  Country: None (occurrence: None)
  Receive Date: 20070227
  Receipt Date: 20060118
  Transmission Date: 20070707
  Serious: Yes (Other)
  Sender: FDA-Public Use
  Company Number: 432820

PATIENT
  Age: 20 Year
  Sex: Female
  Weight: 63.5 kg

DRUGS (3)
  1. ACCUTANE [Suspect]
     Indication: ACNE
     Dosage: ORAL
     Route: 048
     Dates: start: 20020102, end: 20020610
  2. TYLENOL [Concomitant]
  3. ORTHO TRI-CYCLEN [Concomitant]

REACTIONS (9)
  - ANAEMIA [None]
  - BLOOD CHOLESTEROL INCREASED [None]
  - BLOOD TRIGLYCERIDES INCREASED [None]
  - CROHN'S DISEASE [None]
  - DRY SKIN [None]
  - DYSPEPSIA [None]
  - GASTROINTESTINAL DISORDER [None]
  - INFLAMMATORY BOWEL DISEASE [None]
  - LIP DRY [None]
